FAERS Safety Report 17902893 (Version 1)
Quarter: 2020Q2

REPORT INFORMATION
  Report Type: Spontaneous
  Country: DE (occurrence: DE)
  Receive Date: 20200616
  Receipt Date: 20200616
  Transmission Date: 20200714
  Serious: Yes (Death, Life-Threatening, Hospitalization)
  Sender: FDA-Public Use
  Company Number: DE-ASTRAZENECA-2020SE75283

PATIENT
  Age: 84 Year
  Sex: Female

DRUGS (13)
  1. OMEPRAZOL [Suspect]
     Active Substance: OMEPRAZOLE
     Dosage: 20 MG, 0-0-1-0, CAPSULES
     Route: 048
  2. METHOTREXATE. [Suspect]
     Active Substance: METHOTREXATE
     Dosage: 10 MG/WEEK, MONDAY, TABLETS
     Route: 048
  3. COLECALCIFEROL [Concomitant]
     Active Substance: CHOLECALCIFEROL
     Dosage: 1.0DF UNKNOWN
     Route: 048
  4. METOPROLOL. [Concomitant]
     Active Substance: METOPROLOL
     Dosage: 50 MG, 1-0-0-0, PROLONGED-RELEASE TABLETS
     Route: 048
  5. ACETYLSALICYLIC ACID [Suspect]
     Active Substance: ASPIRIN
     Dosage: 100 MG, 0-1-0-0, TABLETS
     Route: 048
  6. CALCIUM-SANDOZ [Concomitant]
     Active Substance: CALCIUM
     Dosage: 500|1000 MG/IU, 0-0-1-0
     Route: 048
  7. SIMVASTATIN. [Concomitant]
     Active Substance: SIMVASTATIN
     Dosage: 20 MG, 0-0-1-0, TABLETS
     Route: 048
  8. METFORMIN [Concomitant]
     Active Substance: METFORMIN HYDROCHLORIDE
     Dosage: 1.0DF UNKNOWN
     Route: 048
  9. PREDNISOLON [Suspect]
     Active Substance: PREDNISOLONE
     Dosage: 1 MG, 1-0-0-0, TABLET
     Route: 048
  10. MOXONIDIN [Concomitant]
     Active Substance: MOXONIDINE
     Dosage: 1.0DF UNKNOWN
     Route: 048
  11. RAMIPRIL. [Concomitant]
     Active Substance: RAMIPRIL
     Dosage: 1.0DF UNKNOWN
     Route: 048
  12. AMLODIPIN [Concomitant]
     Active Substance: AMLODIPINE BESYLATE
     Dosage: 1.0DF UNKNOWN
     Route: 048
  13. FOLIC ACID. [Concomitant]
     Active Substance: FOLIC ACID
     Dosage: 5 MG/WEEK, TUESDAY, TABLETS
     Route: 048

REACTIONS (5)
  - Fracture [Unknown]
  - Fall [Unknown]
  - General physical health deterioration [Unknown]
  - Traumatic haemorrhage [Unknown]
  - Haematoma [Unknown]
